FAERS Safety Report 6071845-X (Version None)
Quarter: 2009Q1

REPORT INFORMATION
  Report Type: 
  Country: None (occurrence: None)
  Receive Date: 20090210
  Receipt Date: 20090129
  Transmission Date: 20090719
  Serious: Yes (Hospitalization)
  Sender: FDA-Public Use
  Company Number: US-CELGENEUS-163-CCAZA-09011548

PATIENT
  Sex: Female
  Weight: 46 kg

DRUGS (12)
  1. AZACITIDINE [Suspect]
     Indication: MYELODYSPLASTIC SYNDROME
     Route: 058
     Dates: start: 20090113, end: 20090120
  2. AZACITIDINE [Suspect]
     Route: 058
  3. DIFLUCAN [Concomitant]
     Indication: INFECTION
     Route: 048
     Dates: start: 20090124
  4. POTASSIUM PHOSPHATES [Concomitant]
     Indication: DRUG USE FOR UNKNOWN INDICATION
     Route: 051
     Dates: start: 20090127
  5. PHENERGAN HCL [Concomitant]
     Indication: NAUSEA
     Route: 051
     Dates: start: 20090124
  6. AMBIEN [Concomitant]
     Indication: INSOMNIA
     Route: 048
     Dates: start: 20090124
  7. MAGNESIUM SULFATE [Concomitant]
     Indication: DRUG USE FOR UNKNOWN INDICATION
     Route: 051
     Dates: start: 20090124
  8. MAGNESIUM TAB SR [Concomitant]
     Indication: DRUG USE FOR UNKNOWN INDICATION
     Route: 048
     Dates: start: 20090124
  9. OXYCODONE HCL [Concomitant]
     Indication: PAIN
     Route: 048
     Dates: start: 20090124
  10. BENADRYL [Concomitant]
     Route: 051
     Dates: start: 20090124
  11. K-DUR [Concomitant]
     Route: 048
     Dates: start: 20090124
  12. MAALOX [Concomitant]
     Indication: DYSPEPSIA
     Route: 048
     Dates: start: 20090124

REACTIONS (5)
  - HAEMORRHAGE [None]
  - HYPOTENSION [None]
  - PERITONEAL HAEMORRHAGE [None]
  - POST PROCEDURAL HAEMORRHAGE [None]
  - THROMBOCYTOPENIA [None]
